FAERS Safety Report 5916160-7 (Version None)
Quarter: 2008Q4

REPORT INFORMATION
  Report Type: 
  Country: None (occurrence: None)
  Receive Date: 20081013
  Receipt Date: 20081006
  Transmission Date: 20090506
  Serious: Yes (Death)
  Sender: FDA-Public Use
  Company Number: PL-ASTRAZENECA-2006AP00056

PATIENT
  Age: 73 Year
  Sex: Male

DRUGS (47)
  1. IRESSA [Suspect]
     Indication: HEAD AND NECK CANCER
     Route: 048
     Dates: start: 20050926, end: 20051107
  2. IRESSA [Suspect]
     Indication: OROPHARYNGEAL CANCER STAGE UNSPECIFIED
     Route: 048
     Dates: start: 20050926, end: 20051107
  3. IRESSA [Suspect]
     Route: 048
     Dates: start: 20051114
  4. IRESSA [Suspect]
     Route: 048
     Dates: start: 20051114
  5. CISPLATIN [Suspect]
     Indication: HEAD AND NECK CANCER
     Route: 042
     Dates: start: 20051004, end: 20051004
  6. CISPLATIN [Suspect]
     Indication: OROPHARYNGEAL CANCER STAGE UNSPECIFIED
     Route: 042
     Dates: start: 20051004, end: 20051004
  7. CISPLATIN [Suspect]
     Dosage: DOSE REDUCED DUE TO DECREASED CREATININE CLEARANCE
     Route: 042
     Dates: start: 20051025, end: 20051025
  8. CISPLATIN [Suspect]
     Dosage: DOSE REDUCED DUE TO DECREASED CREATININE CLEARANCE
     Route: 042
     Dates: start: 20051025, end: 20051025
  9. CISPLATIN [Suspect]
     Dosage: DOSE REDUCED DUE TO DECREASED CREATININE CLEARANCE
     Route: 042
     Dates: start: 20051115, end: 20051115
  10. CISPLATIN [Suspect]
     Dosage: DOSE REDUCED DUE TO DECREASED CREATININE CLEARANCE
     Route: 042
     Dates: start: 20051115, end: 20051115
  11. RADIOTHERAPY [Suspect]
     Indication: HEAD AND NECK CANCER
     Dosage: 2 GY DAILY
     Dates: start: 20051003, end: 20051007
  12. RADIOTHERAPY [Suspect]
     Indication: OROPHARYNGEAL CANCER STAGE UNSPECIFIED
     Dosage: 2 GY DAILY
     Dates: start: 20051003, end: 20051007
  13. RADIOTHERAPY [Suspect]
     Dosage: 2 GY DAILY
     Dates: start: 20051010, end: 20051014
  14. RADIOTHERAPY [Suspect]
     Dosage: 2 GY DAILY
     Dates: start: 20051010, end: 20051014
  15. RADIOTHERAPY [Suspect]
     Dosage: 2 GY DAILY, NOT GIVEN ON 19.10.05
     Dates: start: 20051017, end: 20051022
  16. RADIOTHERAPY [Suspect]
     Dosage: 2 GY DAILY, NOT GIVEN ON 19.10.05
     Dates: start: 20051017, end: 20051022
  17. RADIOTHERAPY [Suspect]
     Dosage: 2 GY DAILY
     Dates: start: 20051024, end: 20051028
  18. RADIOTHERAPY [Suspect]
     Dosage: 2 GY DAILY
     Dates: start: 20051024, end: 20051028
  19. RADIOTHERAPY [Suspect]
     Dosage: 2 GY DAILY
     Dates: start: 20051031, end: 20051104
  20. RADIOTHERAPY [Suspect]
     Dosage: 2 GY DAILY
     Dates: start: 20051031, end: 20051104
  21. RADIOTHERAPY [Suspect]
     Dosage: 2 GY DAILY
     Dates: start: 20051114, end: 20051118
  22. RADIOTHERAPY [Suspect]
     Dosage: 2 GY DAILY
     Dates: start: 20051114, end: 20051118
  23. RADIOTHERAPY [Suspect]
     Dosage: 2 GY DAILY
     Dates: start: 20051121, end: 20051125
  24. RADIOTHERAPY [Suspect]
     Dosage: 2 GY DAILY
     Dates: start: 20051121, end: 20051125
  25. HALOPERIDOL [Concomitant]
     Indication: PROPHYLAXIS
     Route: 048
     Dates: start: 20051114, end: 20051207
  26. TRAMADOL HCL [Concomitant]
     Indication: RADIATION MUCOSITIS
     Route: 048
     Dates: start: 20051114, end: 20051207
  27. ACETYLCYSTEINE [Concomitant]
     Indication: PROPHYLAXIS
     Route: 048
     Dates: start: 20051031, end: 20051207
  28. KETOPROFEN [Concomitant]
     Indication: DYSPHAGIA
     Route: 048
     Dates: start: 20051126, end: 20051207
  29. RANITIDINE [Concomitant]
     Indication: PROPHYLAXIS
     Route: 042
     Dates: start: 20051103
  30. RANITIDINE [Concomitant]
     Route: 048
     Dates: start: 20051006, end: 20051102
  31. RANITIDINE [Concomitant]
     Route: 048
     Dates: start: 20051126, end: 20051207
  32. ETAMSYLATE [Concomitant]
     Indication: PROPHYLAXIS
     Route: 042
     Dates: start: 20051017
  33. AMLODIPINE [Concomitant]
     Indication: HYPERTENSION
     Route: 048
     Dates: start: 20051006
  34. CAPTOPRIL [Concomitant]
     Indication: HYPERTENSION
     Route: 048
     Dates: start: 20051006, end: 20051013
  35. ALLOPURINOL [Concomitant]
     Indication: HYPERURICAEMIA
     Route: 048
     Dates: start: 20051011, end: 20051017
  36. NYSTATIN [Concomitant]
     Indication: PROPHYLAXIS
     Dates: start: 20051011
  37. KETONAL [Concomitant]
     Indication: TUMOUR PAIN
     Dates: start: 20051006, end: 20051018
  38. METOPROLOL TARTRATE [Concomitant]
     Indication: HYPERTENSION
     Route: 048
     Dates: start: 20051018
  39. FENTANYL [Concomitant]
     Indication: RADIATION DYSPHAGIA
     Route: 003
     Dates: start: 20051024
  40. ACETAMINOPHEN [Concomitant]
     Indication: RADIATION DYSPHAGIA
     Dates: start: 20051019
  41. CLINDAMYCIN HCL [Concomitant]
     Route: 048
     Dates: start: 20051025, end: 20051031
  42. HYDRATION [Concomitant]
     Indication: HYPERCREATININAEMIA
     Route: 042
     Dates: start: 20051010
  43. HYDRATION [Concomitant]
     Indication: HYPERURICAEMIA
     Route: 042
     Dates: start: 20051010
  44. FUROSEMIDE [Concomitant]
     Indication: HYPERCREATININAEMIA
     Route: 042
     Dates: start: 20051010
  45. FUROSEMIDE [Concomitant]
     Indication: HYPERURICAEMIA
     Route: 042
     Dates: start: 20051010
  46. HYDROXYZINE [Concomitant]
     Indication: PROPHYLAXIS
     Route: 048
     Dates: start: 20051103, end: 20051108
  47. HYDROXYZINE [Concomitant]
     Indication: HALLUCINATION
     Route: 048
     Dates: start: 20051103, end: 20051108

REACTIONS (2)
  - DEATH [None]
  - FATIGUE [None]
